FAERS Safety Report 25778445 (Version 1)
Quarter: 2025Q3

REPORT INFORMATION
  Report Type: Spontaneous
  Country: US (occurrence: US)
  Receive Date: 20250909
  Receipt Date: 20250909
  Transmission Date: 20251021
  Serious: No
  Sender: NOVEN
  Company Number: US-NOVEN PHARMACEUTICALS, INC.-2025-NOV-US001210

PATIENT
  Age: 38 Year
  Sex: Female
  Weight: 95.238 kg

DRUGS (1)
  1. COMBIPATCH [Suspect]
     Active Substance: ESTRADIOL\NORETHINDRONE ACETATE
     Indication: Ovarian failure
     Dosage: 0.05/0.14MG, TWICE A WEEK (FRIDAY AND TUESDAY)
     Route: 062
     Dates: start: 20250626

REACTIONS (7)
  - Panic attack [Recovered/Resolved]
  - Muscle spasms [Recovered/Resolved]
  - Condition aggravated [Recovered/Resolved]
  - Headache [Recovered/Resolved]
  - Device use issue [Recovered/Resolved]
  - Product storage error [Unknown]
  - Product label issue [Unknown]

NARRATIVE: CASE EVENT DATE: 20250601
